FAERS Safety Report 16176443 (Version 3)
Quarter: 2019Q2

REPORT INFORMATION
  Report Type: Spontaneous
  Country: PT (occurrence: PT)
  Receive Date: 20190409
  Receipt Date: 20190419
  Transmission Date: 20190711
  Serious: Yes (Life-Threatening, Hospitalization, Other)
  Sender: FDA-Public Use
  Company Number: PT-B.I. PHARMACEUTICALS,INC./RIDGEFIELD-2019-BI-015771

PATIENT
  Age: 73 Year
  Sex: Male
  Weight: 74 kg

DRUGS (2)
  1. DOCETAXEL. [Concomitant]
     Active Substance: DOCETAXEL
     Indication: LUNG ADENOCARCINOMA
     Route: 065
     Dates: start: 20190321, end: 201903
  2. VARGATEF [Suspect]
     Active Substance: NINTEDANIB
     Indication: LUNG ADENOCARCINOMA
     Route: 048
     Dates: start: 20190228, end: 20190324

REACTIONS (3)
  - Gastrointestinal neoplasm [Unknown]
  - Peritonitis [Unknown]
  - Pneumoperitoneum [Recovering/Resolving]

NARRATIVE: CASE EVENT DATE: 20190324
